FAERS Safety Report 7375321-3 (Version None)
Quarter: 2011Q1

REPORT INFORMATION
  Report Type: 
  Country: None (occurrence: None)
  Receive Date: 20110325
  Receipt Date: 20100203
  Transmission Date: 20110831
  Serious: No
  Sender: FDA-Public Use
  Company Number: US-BAYER-201013640NA

PATIENT
  Sex: Female

DRUGS (1)
  1. MIRENA [Suspect]
     Dosage: 20 MCG/24HR, UNK

REACTIONS (3)
  - VAGINAL HAEMORRHAGE [None]
  - VAGINAL DISCHARGE [None]
  - MUSCLE SPASMS [None]
